FAERS Safety Report 5032598-7 (Version None)
Quarter: 2006Q2

REPORT INFORMATION
  Report Type: 
  Country: None (occurrence: None)
  Receive Date: 20060622
  Receipt Date: 20060620
  Transmission Date: 20061013
  Serious: Yes (Other)
  Sender: FDA-Public Use
  Company Number: US-JNJFOC-20060201272

PATIENT
  Sex: Male
  Weight: 170.55 kg

DRUGS (2)
  1. LEVAQUIN [Suspect]
     Route: 048
  2. LEVAQUIN [Suspect]
     Indication: INFECTION
     Route: 048

REACTIONS (6)
  - DRUG HYPERSENSITIVITY [None]
  - GENERALISED OEDEMA [None]
  - HYPOTHYROIDISM [None]
  - PAIN IN EXTREMITY [None]
  - RHEUMATOID ARTHRITIS [None]
  - THYROID DISORDER [None]
